FAERS Safety Report 5383968-9 (Version None)
Quarter: 2007Q3

REPORT INFORMATION
  Report Type: 
  Country: None (occurrence: None)
  Receive Date: 20070711
  Receipt Date: 20070702
  Transmission Date: 20080115
  Serious: Yes (Other)
  Sender: FDA-Public Use
  Company Number: BE-JNJFOC-20070602584

PATIENT
  Sex: Male
  Weight: 94 kg

DRUGS (6)
  1. TOPAMAX [Suspect]
     Indication: EPILEPSY
     Route: 048
  2. DEPAKENE [Concomitant]
     Indication: EPILEPSY
  3. ENALAPRIL [Concomitant]
     Indication: HYPERTENSION
     Route: 048
  4. CITALOPRAM HYDROBROMIDE [Concomitant]
     Indication: DEPRESSION
     Route: 048
  5. DONEPEZIL HCL [Concomitant]
     Indication: COGNITIVE DISORDER
     Route: 048
  6. INDERAL [Concomitant]
     Indication: TREMOR

REACTIONS (2)
  - DYSPNOEA [None]
  - SUPRAVENTRICULAR EXTRASYSTOLES [None]
